FAERS Safety Report 10340193 (Version 1)
Quarter: 2014Q3

REPORT INFORMATION
  Report Type: Spontaneous
  Country: US (occurrence: US)
  Receive Date: 20140724
  Receipt Date: 20140724
  Transmission Date: 20150326
  Serious: Yes (Hospitalization)
  Sender: FDA-Public Use
  Company Number: US-BRISTOL-MYERS SQUIBB COMPANY-21197843

PATIENT
  Age: 74 Year
  Sex: Male
  Weight: 101.58 kg

DRUGS (15)
  1. LEVOTHYROXIN [Concomitant]
     Active Substance: LEVOTHYROXINE
  2. SPRYCEL [Suspect]
     Active Substance: DASATINIB
     Indication: CHRONIC MYELOID LEUKAEMIA
     Route: 048
     Dates: start: 20140601
  3. ALBUTEROL. [Concomitant]
     Active Substance: ALBUTEROL
  4. CENTRUM SILVER [Concomitant]
     Active Substance: VITAMINS
  5. VITAMIN C [Concomitant]
     Active Substance: ASCORBIC ACID
  6. SALMON OIL [Concomitant]
     Active Substance: FISH OIL
  7. ASA [Concomitant]
     Active Substance: ASPIRIN
  8. DUTASTERIDE [Concomitant]
     Active Substance: DUTASTERIDE
  9. TAMSULOSIN HCL [Concomitant]
     Active Substance: TAMSULOSIN
  10. GLUCOSAMINE [Concomitant]
     Active Substance: GLUCOSAMINE
  11. CALCIUM + VITAMIN D [Concomitant]
     Active Substance: CALCIUM\VITAMIN D
  12. GINKGO [Concomitant]
     Active Substance: GINKGO
  13. ADVAIR HFA [Concomitant]
     Active Substance: FLUTICASONE PROPIONATE\SALMETEROL XINAFOATE
  14. VITAMIN B COMPLEX [Concomitant]
     Active Substance: CYANOCOBALAMIN\DEXPANTHENOL\NIACINAMIDE\PYRIDOXINE HYDROCHLORIDE\RIBOFLAVIN 5^-PHOSPHATE SODIUM\THIAMINE HYDROCHLORIDE\VITAMIN B COMPLEX
  15. BIOTIN [Concomitant]
     Active Substance: BIOTIN

REACTIONS (1)
  - Gallbladder disorder [Not Recovered/Not Resolved]

NARRATIVE: CASE EVENT DATE: 20140620
